FAERS Safety Report 6753039-5 (Version None)
Quarter: 2010Q2

REPORT INFORMATION
  Report Type: 
  Country: None (occurrence: None)
  Receive Date: 20100603
  Receipt Date: 20100521
  Transmission Date: 20101027
  Serious: Yes (Other)
  Sender: FDA-Public Use
  Company Number: US-ELI_LILLY_AND_COMPANY-US201005006070

PATIENT
  Age: 82 Year
  Sex: Female

DRUGS (3)
  1. BYETTA [Suspect]
     Indication: DIABETES MELLITUS
     Dosage: 10 UG, UNKNOWN
     Route: 058
  2. BYETTA [Suspect]
     Dosage: 5 UG, 2/D
     Route: 058
  3. GLYBURIDE [Concomitant]

REACTIONS (7)
  - BLOOD GLUCOSE INCREASED [None]
  - CARDIAC PACEMAKER INSERTION [None]
  - DRUG EFFECT INCREASED [None]
  - HYPOAESTHESIA [None]
  - OEDEMA PERIPHERAL [None]
  - PAIN IN JAW [None]
  - SENSATION OF HEAVINESS [None]
